FAERS Safety Report 6684791-5 (Version None)
Quarter: 2010Q2

REPORT INFORMATION
  Report Type: 
  Country: None (occurrence: None)
  Receive Date: 20100416
  Receipt Date: 20100406
  Transmission Date: 20101027
  Serious: Yes (Hospitalization, Other)
  Sender: FDA-Public Use
  Company Number: US-ELI_LILLY_AND_COMPANY-US201003004399

PATIENT
  Sex: Male
  Weight: 117.1 kg

DRUGS (7)
  1. BYETTA [Suspect]
     Indication: TYPE 2 DIABETES MELLITUS
     Dosage: 5 UG, 2/D
     Route: 058
     Dates: start: 20060701, end: 20060801
  2. BYETTA [Suspect]
     Dosage: 10 UG, 2/D
     Route: 058
     Dates: start: 20060801
  3. BYETTA [Suspect]
     Dosage: 10 UG, 2/D
     Route: 058
  4. METFORMIN [Concomitant]
     Indication: TYPE 2 DIABETES MELLITUS
     Dosage: 1000 MG, 2/D
     Route: 048
     Dates: start: 20000101
  5. LIPITOR [Concomitant]
     Route: 048
  6. LOTREL [Concomitant]
     Indication: HYPERTENSION
     Route: 048
     Dates: start: 20070115
  7. HUMATROPE [Concomitant]
     Indication: HYPOPITUITARISM
     Dosage: 0.2 MG, DAILY (1/D)
     Route: 058
     Dates: start: 20080502

REACTIONS (7)
  - ATRIAL FLUTTER [None]
  - ATRIOVENTRICULAR BLOCK COMPLETE [None]
  - CARDIAC FAILURE CONGESTIVE [None]
  - GLYCOSYLATED HAEMOGLOBIN INCREASED [None]
  - INCONTINENCE [None]
  - MEDICAL DEVICE COMPLICATION [None]
  - ROAD TRAFFIC ACCIDENT [None]
